FAERS Safety Report 8033029-5 (Version None)
Quarter: 2012Q1

REPORT INFORMATION
  Report Type: 
  Country: None (occurrence: None)
  Receive Date: 20120110
  Receipt Date: 20120105
  Transmission Date: 20120608
  Serious: Yes (Death)
  Sender: FDA-Public Use
  Company Number: DZ-SANOFI-AVENTIS-2012SA001239

PATIENT
  Age: 48 Year
  Sex: Female

DRUGS (1)
  1. LOVENOX [Suspect]
     Indication: PROPHYLAXIS
     Route: 058

REACTIONS (1)
  - PULMONARY EMBOLISM [None]
